FAERS Safety Report 10983605 (Version 4)
Quarter: 2015Q4

REPORT INFORMATION
  Report Type: Report from Study
  Country: US (occurrence: US)
  Receive Date: 20150403
  Receipt Date: 20151130
  Transmission Date: 20160304
  Serious: Yes (Hospitalization, Other)
  Sender: FDA-Public Use
  Company Number: US-SA-2015SA041325

PATIENT
  Age: 73 Year
  Sex: Male
  Weight: 107.9 kg

DRUGS (14)
  1. COQ [Concomitant]
  2. TRAZODONE [Concomitant]
     Active Substance: TRAZODONE HYDROCHLORIDE
  3. METOLAZONE. [Concomitant]
     Active Substance: METOLAZONE
  4. SPIRONOLACTONE. [Concomitant]
     Active Substance: SPIRONOLACTONE
  5. LISINOPRIL. [Concomitant]
     Active Substance: LISINOPRIL
  6. GABAPENTIN. [Concomitant]
     Active Substance: GABAPENTIN
  7. POTASSIUM [Concomitant]
     Active Substance: POTASSIUM
  8. METOPROLOL [Concomitant]
     Active Substance: METOPROLOL
  9. VITAMIN C [Concomitant]
     Active Substance: ASCORBIC ACID
  10. WARFARIN [Concomitant]
     Active Substance: WARFARIN
  11. SIMVASTATIN. [Concomitant]
     Active Substance: SIMVASTATIN
  12. LANTUS [Suspect]
     Active Substance: INSULIN GLARGINE
     Indication: DIABETES MELLITUS
     Dosage: DOSE:50 UNIT(S)
     Route: 065
  13. FUROSEMIDE. [Concomitant]
     Active Substance: FUROSEMIDE
  14. APIDRA [Concomitant]
     Active Substance: INSULIN GLULISINE

REACTIONS (4)
  - Drug administration error [Unknown]
  - Haemorrhage [Recovering/Resolving]
  - Gangrene [Recovering/Resolving]
  - Pain in extremity [Recovering/Resolving]

NARRATIVE: CASE EVENT DATE: 2015
